FAERS Safety Report 9232720 (Version 1)
Quarter: 2013Q2

REPORT INFORMATION
  Report Type: Spontaneous
  Country: US (occurrence: None)
  Receive Date: 20130415
  Receipt Date: 20130415
  Transmission Date: 20140414
  Serious: Yes (Other)
  Sender: FDA-Public Use
  Company Number: None

PATIENT
  Age: 67 Year
  Sex: Female
  Weight: 65.77 kg

DRUGS (2)
  1. ABILIFY [Suspect]
     Indication: DEPRESSION
     Dates: start: 20130219, end: 20130316
  2. OXITRAL [Concomitant]

REACTIONS (6)
  - Vision blurred [None]
  - Confusional state [None]
  - Insomnia [None]
  - Decreased appetite [None]
  - Amnesia [None]
  - Abdominal pain upper [None]
